FAERS Safety Report 25015003 (Version 1)
Quarter: 2025Q1

REPORT INFORMATION
  Report Type: Spontaneous
  Country: US (occurrence: US)
  Receive Date: 20250226
  Receipt Date: 20250226
  Transmission Date: 20250408
  Serious: Yes (Death, Other)
  Sender: NOVARTIS
  Company Number: US-INCYTE CORPORATION-2025IN002026

PATIENT
  Age: 64 Year
  Sex: Male

DRUGS (6)
  1. JAKAFI [Suspect]
     Active Substance: RUXOLITINIB
     Indication: Myelodysplastic syndrome
     Route: 065
  2. JAKAFI [Suspect]
     Active Substance: RUXOLITINIB
     Indication: Paroxysmal nocturnal haemoglobinuria
  3. IPTACOPAN [Suspect]
     Active Substance: IPTACOPAN
     Indication: Myelodysplastic syndrome
     Dosage: 200 MG, BID
     Route: 065
     Dates: start: 202408
  4. IPTACOPAN [Suspect]
     Active Substance: IPTACOPAN
     Indication: Paroxysmal nocturnal haemoglobinuria
  5. RAVULIZUMAB [Concomitant]
     Active Substance: RAVULIZUMAB
     Indication: Myelodysplastic syndrome
     Route: 065
  6. RAVULIZUMAB [Concomitant]
     Active Substance: RAVULIZUMAB
     Indication: Paroxysmal nocturnal haemoglobinuria

REACTIONS (6)
  - Sepsis [Fatal]
  - Neutropenia [Unknown]
  - Nephrolithiasis [Unknown]
  - Haemoglobin decreased [Unknown]
  - Therapy non-responder [Unknown]
  - Off label use [Unknown]

NARRATIVE: CASE EVENT DATE: 20250212
